FAERS Safety Report 15190033 (Version 1)
Quarter: 2018Q3

REPORT INFORMATION
  Report Type: Spontaneous
  Country: US (occurrence: US)
  Receive Date: 20180625
  Receipt Date: 20180625
  Transmission Date: 20181010
  Serious: Yes (Hospitalization)
  Sender: FDA-Public Use
  Company Number: None

PATIENT
  Age: 72 Year
  Sex: Male

DRUGS (8)
  1. FLOMAX [Concomitant]
     Active Substance: TAMSULOSIN HYDROCHLORIDE
  2. PRAVASTATIN. [Concomitant]
     Active Substance: PRAVASTATIN
  3. SIROLIMUS 1MG TAB [Suspect]
     Active Substance: SIROLIMUS
  4. COPPER [Concomitant]
     Active Substance: COPPER
  5. NEORAL [Suspect]
     Active Substance: CYCLOSPORINE
     Indication: HEART TRANSPLANT
     Route: 048
     Dates: start: 20160107
  6. SIROLIMUS 1MG TAB [Suspect]
     Active Substance: SIROLIMUS
     Indication: HEART TRANSPLANT
     Route: 048
     Dates: start: 20160107
  7. METOPROLOL. [Concomitant]
     Active Substance: METOPROLOL
  8. SAMOLINIC [Concomitant]

REACTIONS (2)
  - Viral infection [None]
  - Pyrexia [None]

NARRATIVE: CASE EVENT DATE: 20180525
